FAERS Safety Report 10501101 (Version 1)
Quarter: 2014Q4

REPORT INFORMATION
  Report Type: Spontaneous
  Country: US (occurrence: None)
  Receive Date: 20141006
  Receipt Date: 20141006
  Transmission Date: 20150528
  Serious: Yes (Other)
  Sender: FDA-Public Use
  Company Number: None

PATIENT
  Age: 58 Year
  Sex: Female
  Weight: 67.13 kg

DRUGS (2)
  1. MONTELUKAST SODIUM. [Suspect]
     Active Substance: MONTELUKAST SODIUM
     Indication: ARTHRITIS REACTIVE
     Dosage: 1 PO. QD, THERAPY DATE:  MULTIPLE
     Route: 048
  2. MONTELUKAST SODIUM. [Suspect]
     Active Substance: MONTELUKAST SODIUM
     Indication: ALLERGY PROPHYLAXIS
     Dosage: 1 PO. QD, THERAPY DATE:  MULTIPLE
     Route: 048

REACTIONS (4)
  - Therapeutic response changed [None]
  - Hypersensitivity [None]
  - Drug ineffective [None]
  - Product substitution issue [None]
